FAERS Safety Report 9580169 (Version 1)
Quarter: 2013Q4

REPORT INFORMATION
  Report Type: Spontaneous
  Country: US (occurrence: None)
  Receive Date: 20131001
  Receipt Date: 20131001
  Transmission Date: 20140711
  Serious: No
  Sender: FDA-Public Use
  Company Number: None

PATIENT
  Sex: 0

DRUGS (1)
  1. SYMBICORT [Suspect]

REACTIONS (5)
  - Drug ineffective [None]
  - Furuncle [None]
  - Back pain [None]
  - Discomfort [None]
  - Delusion [None]
